FAERS Safety Report 4823601-5 (Version None)
Quarter: 2005Q4

REPORT INFORMATION
  Report Type: 
  Country: None (occurrence: None)
  Receive Date: 20051107
  Receipt Date: 20051024
  Transmission Date: 20060501
  Serious: Yes (Death, Other)
  Sender: FDA-Public Use
  Company Number: MC200500956

PATIENT
  Age: 61 Year
  Sex: Male
  Weight: 77 kg

DRUGS (4)
  1. ANGIOMAX [Suspect]
  2. ADENOSINE [Concomitant]
  3. NTG (GLYCERYL TRINITRATE) [Concomitant]
  4. PLAVIX [Concomitant]

REACTIONS (5)
  - CHEST PAIN [None]
  - ELECTROCARDIOGRAM ST SEGMENT ABNORMAL [None]
  - INTERNATIONAL NORMALISED RATIO DECREASED [None]
  - PROTHROMBIN TIME SHORTENED [None]
  - STENT OCCLUSION [None]
